FAERS Safety Report 21008738 (Version 1)
Quarter: 2022Q2

REPORT INFORMATION
  Report Type: Spontaneous
  Country: US (occurrence: US)
  Receive Date: 20220627
  Receipt Date: 20220627
  Transmission Date: 20220721
  Serious: No
  Sender: FDA-Public Use
  Company Number: US-ELI_LILLY_AND_COMPANY-US202206011976

PATIENT
  Sex: Female

DRUGS (2)
  1. TRULICITY [Suspect]
     Active Substance: DULAGLUTIDE
     Indication: Glycosylated haemoglobin increased
     Dosage: 1.5 MG, UNKNOWN
     Route: 065
     Dates: start: 202112
  2. TRULICITY [Suspect]
     Active Substance: DULAGLUTIDE
     Indication: Weight decreased

REACTIONS (2)
  - Abdominal pain [Unknown]
  - Off label use [Unknown]
